FAERS Safety Report 14069776 (Version 1)
Quarter: 2017Q4

REPORT INFORMATION
  Report Type: Spontaneous
  Country: GB (occurrence: GB)
  Receive Date: 20171010
  Receipt Date: 20171010
  Transmission Date: 20180321
  Serious: Yes (Hospitalization)
  Sender: FDA-Public Use
  Company Number: GB-JNJFOC-20171008714

PATIENT
  Age: 75 Year
  Sex: Male
  Weight: 63.99 kg

DRUGS (23)
  1. ATORVASTATIN [Concomitant]
     Active Substance: ATORVASTATIN
     Route: 065
     Dates: start: 20161130
  2. ZEROBASE [Concomitant]
     Route: 065
     Dates: start: 20161130
  3. ALFACALCIDOL [Concomitant]
     Active Substance: ALFACALCIDOL
     Route: 065
     Dates: start: 20170411
  4. ALLOPURINOL. [Concomitant]
     Active Substance: ALLOPURINOL
     Route: 065
     Dates: start: 20161130
  5. DESUNIN [Concomitant]
     Active Substance: CHOLECALCIFEROL
     Route: 065
     Dates: start: 20161130
  6. HYDROXOCOBALAMIN [Concomitant]
     Active Substance: HYDROXOCOBALAMIN
     Route: 065
     Dates: start: 20160309
  7. ASPIRIN. [Concomitant]
     Active Substance: ASPIRIN
     Route: 065
     Dates: start: 20161130
  8. GLYCERYL TRINITRATE [Concomitant]
     Active Substance: NITROGLYCERIN
     Route: 060
     Dates: start: 20161130
  9. ISOSORBIDE MONONITRATE. [Concomitant]
     Active Substance: ISOSORBIDE MONONITRATE
     Route: 065
     Dates: start: 20161130
  10. COCODAMOL [Concomitant]
     Active Substance: ACETAMINOPHEN\CODEINE PHOSPHATE
     Route: 065
     Dates: start: 20161130
  11. LANSOPRAZOLE. [Concomitant]
     Active Substance: LANSOPRAZOLE
     Route: 065
     Dates: start: 20161130
  12. BISOPROLOL [Concomitant]
     Active Substance: BISOPROLOL
     Route: 065
     Dates: start: 20170515
  13. TRAMADOL HYDROCHLORIDE. [Suspect]
     Active Substance: TRAMADOL HYDROCHLORIDE
     Indication: PRODUCT USED FOR UNKNOWN INDICATION
     Route: 065
     Dates: start: 20161021
  14. SODIUM BICARBONATE. [Concomitant]
     Active Substance: SODIUM BICARBONATE
     Route: 065
     Dates: start: 20161130
  15. CREON [Concomitant]
     Active Substance: PANCRELIPASE AMYLASE\PANCRELIPASE LIPASE\PANCRELIPASE PROTEASE
     Route: 065
     Dates: start: 20161130
  16. SERETIDE [Concomitant]
     Active Substance: FLUTICASONE PROPIONATE\SALMETEROL XINAFOATE
     Route: 055
     Dates: start: 20161130
  17. DOXYCYCLINE. [Concomitant]
     Active Substance: DOXYCYCLINE
     Route: 065
     Dates: start: 20170825, end: 20170901
  18. SENNA [Concomitant]
     Active Substance: SENNA LEAF\SENNOSIDES\SENNOSIDES A AND B
     Route: 065
     Dates: start: 20161130
  19. PARACETAMOL [Concomitant]
     Active Substance: ACETAMINOPHEN
     Route: 065
     Dates: start: 20161130
  20. DIGOXIN. [Concomitant]
     Active Substance: DIGOXIN
     Route: 065
     Dates: start: 20161130
  21. THIAMINE. [Concomitant]
     Active Substance: THIAMINE
     Route: 065
     Dates: start: 20161130
  22. VENTOLIN [Concomitant]
     Active Substance: ALBUTEROL SULFATE
     Route: 055
     Dates: start: 20161130
  23. CALCIUM ACETATE. [Concomitant]
     Active Substance: CALCIUM ACETATE
     Route: 065
     Dates: start: 20161130

REACTIONS (3)
  - Dysphemia [Unknown]
  - Muscle twitching [Unknown]
  - Partial seizures [Recovered/Resolved]

NARRATIVE: CASE EVENT DATE: 20170914
